FAERS Safety Report 19278527 (Version 1)
Quarter: 2021Q2

REPORT INFORMATION
  Report Type: Spontaneous
  Country: CN (occurrence: CN)
  Receive Date: 20210520
  Receipt Date: 20210520
  Transmission Date: 20210717
  Serious: Yes (Hospitalization, Other)
  Sender: FDA-Public Use
  Company Number: CN-SA-2021SA163686

PATIENT
  Age: 51 Year
  Sex: Male

DRUGS (4)
  1. HARNAL [Suspect]
     Active Substance: TAMSULOSIN HYDROCHLORIDE
     Indication: PROSTATITIS
     Dosage: 0.2 MG, TWICE DAILY
     Route: 048
     Dates: start: 20210420
  2. MIRABEGRON [Suspect]
     Active Substance: MIRABEGRON
     Indication: HYPERTONIC BLADDER
  3. MIRABEGRON [Suspect]
     Active Substance: MIRABEGRON
     Indication: HAEMATURIA
     Dosage: 50 MG, ONCE DAILY
     Route: 048
     Dates: start: 20210420
  4. MINOCYCLINE [Concomitant]
     Active Substance: MINOCYCLINE HYDROCHLORIDE
     Indication: PRODUCT USED FOR UNKNOWN INDICATION
     Dosage: 100 MG, BID
     Route: 048
     Dates: end: 20200420

REACTIONS (4)
  - Inappropriate schedule of product administration [Unknown]
  - Retinal haemorrhage [Unknown]
  - Product use in unapproved indication [Unknown]
  - Blood pressure increased [Unknown]

NARRATIVE: CASE EVENT DATE: 20210507
